FAERS Safety Report 6671795-1 (Version None)
Quarter: 2010Q2

REPORT INFORMATION
  Report Type: 
  Country: None (occurrence: None)
  Receive Date: 20100406
  Receipt Date: 20100406
  Transmission Date: 20101027
  Serious: Yes (Other)
  Sender: FDA-Public Use
  Company Number: None

PATIENT
  Age: 45 Year
  Sex: Male
  Weight: 86.1834 kg

DRUGS (1)
  1. TRAMADOL HCL [Suspect]
     Indication: PAIN
     Dosage: 1 OR 2 TABLETS 4-6 HRS AS NEEDED PO
     Route: 048
     Dates: start: 20100403, end: 20100403

REACTIONS (12)
  - COORDINATION ABNORMAL [None]
  - DIARRHOEA [None]
  - DIZZINESS [None]
  - EUPHORIC MOOD [None]
  - HYPERHIDROSIS [None]
  - INITIAL INSOMNIA [None]
  - LOSS OF CONSCIOUSNESS [None]
  - NAUSEA [None]
  - PALPITATIONS [None]
  - PYREXIA [None]
  - TREMOR [None]
  - TUNNEL VISION [None]
